FAERS Safety Report 7439674-X (Version None)
Quarter: 2011Q2

REPORT INFORMATION
  Report Type: 
  Country: None (occurrence: None)
  Receive Date: 20110427
  Receipt Date: 20110414
  Transmission Date: 20111010
  Serious: Yes (Other)
  Sender: FDA-Public Use
  Company Number: PHHY2011FR31739

PATIENT
  Age: 79 Year
  Sex: Female

DRUGS (1)
  1. RASILEZ [Suspect]
     Indication: HYPERTENSION
     Dosage: 150 MG, QD

REACTIONS (2)
  - RENAL FAILURE [None]
  - BLOOD CREATININE INCREASED [None]
